FAERS Safety Report 25961796 (Version 1)
Quarter: 2025Q4

REPORT INFORMATION
  Report Type: Other
  Country: EU (occurrence: EU)
  Receive Date: 20251027
  Receipt Date: 20251027
  Transmission Date: 20260118
  Serious: Yes (Other)
  Sender: ZYDUS PHARM
  Company Number: None

PATIENT

DRUGS (5)
  1. GABAPENTIN [Suspect]
     Active Substance: GABAPENTIN
     Indication: Wrong product administered
     Dosage: 100 MILLIGRAM
     Route: 048
     Dates: start: 20250809, end: 20250809
  2. TAMSULOSIN [Suspect]
     Active Substance: TAMSULOSIN
     Indication: Wrong product administered
     Dosage: 0.4 MILLIGRAM
     Route: 048
     Dates: start: 20250809, end: 20250809
  3. MIRTAZAPINE [Suspect]
     Active Substance: MIRTAZAPINE
     Indication: Wrong product administered
     Dosage: 15 MILLIGRAM
     Route: 048
     Dates: start: 20250809, end: 20250809
  4. MELATONIN [Suspect]
     Active Substance: MELATONIN
     Indication: Wrong product administered
     Dosage: 2 MILLIGRAM
     Route: 048
     Dates: start: 20250809, end: 20250809
  5. POTASSIUM CHLORIDE [Concomitant]
     Active Substance: POTASSIUM CHLORIDE
     Indication: Wrong product administered
     Dosage: 3 DOSAGE FORM
     Route: 048
     Dates: start: 20250809, end: 20250809

REACTIONS (2)
  - Depressed level of consciousness [Recovered/Resolved]
  - Wrong product administered [Recovered/Resolved]

NARRATIVE: CASE EVENT DATE: 20250809
